FAERS Safety Report 24532649 (Version 1)
Quarter: 2024Q4

REPORT INFORMATION
  Report Type: Spontaneous
  Country: IT (occurrence: IT)
  Receive Date: 20241022
  Receipt Date: 20241022
  Transmission Date: 20250114
  Serious: Yes (Hospitalization)
  Sender: RANBAXY
  Company Number: IT-MINISAL02-1000254

PATIENT
  Age: 51 Year
  Sex: Male

DRUGS (3)
  1. PAROXETINE [Suspect]
     Active Substance: PAROXETINE
     Indication: Intentional overdose
     Dosage: 30 DOSAGE FORM, UNK
     Route: 048
     Dates: start: 20240809, end: 20240809
  2. LORMETAZEPAM [Suspect]
     Active Substance: LORMETAZEPAM
     Indication: Intentional overdose
     Dosage: UNK
     Route: 048
     Dates: start: 20240809, end: 20240809
  3. XANAX [Suspect]
     Active Substance: ALPRAZOLAM
     Indication: Intentional overdose
     Dosage: UNK
     Route: 048
     Dates: start: 20240809, end: 20240809

REACTIONS (3)
  - Intentional overdose [Not Recovered/Not Resolved]
  - Somnolence [Not Recovered/Not Resolved]
  - Sopor [Not Recovered/Not Resolved]

NARRATIVE: CASE EVENT DATE: 20240809
